FAERS Safety Report 4300417-X (Version None)
Quarter: 2004Q1

REPORT INFORMATION
  Report Type: 
  Country: None (occurrence: None)
  Receive Date: 20040218
  Receipt Date: 20040218
  Transmission Date: 20041129
  Serious: Yes (Hospitalization)
  Sender: FDA-Public Use
  Company Number: None

PATIENT
  Age: 59 Year
  Sex: Male
  Weight: 84 kg

DRUGS (10)
  1. ATENOLOL [Suspect]
     Indication: HYPERTENSION
     Dosage: 25 MG QD
  2. LISINOPRIL [Suspect]
     Indication: HYPERTENSION
     Dosage: 10 MG QD
  3. . [Suspect]
  4. ASPIRIN [Concomitant]
  5. DOXEPIN HCL [Concomitant]
  6. FUROSEMIDE [Concomitant]
  7. LORATADINE [Concomitant]
  8. NAPROXEN [Concomitant]
  9. NIACIN [Concomitant]
  10. RALEEPRAZOLE [Concomitant]

REACTIONS (2)
  - DIZZINESS [None]
  - FALL [None]
